FAERS Safety Report 5934765-4 (Version None)
Quarter: 2008Q4

REPORT INFORMATION
  Report Type: 
  Country: None (occurrence: None)
  Receive Date: 20081029
  Receipt Date: 20081021
  Transmission Date: 20090506
  Serious: Yes (Hospitalization)
  Sender: FDA-Public Use
  Company Number: GB-ROXANE LABORATORIES, INC.-2008-RO-00066RO

PATIENT
  Age: 56 Year
  Sex: Male

DRUGS (13)
  1. MORPHINE [Suspect]
     Indication: ANALGESIA
  2. HYDROMORPHONE HCL [Suspect]
     Indication: ANALGESIA
     Route: 058
  3. HYDROMORPHONE HCL [Suspect]
     Route: 042
  4. HYDROMORPHONE HCL [Suspect]
     Dosage: 25MG
     Route: 042
  5. OXYCONTIN [Suspect]
     Indication: ANALGESIA
  6. HALOPERIDOL [Suspect]
  7. ACETAMINOPHEN [Suspect]
     Dosage: 4G
     Route: 048
  8. GABAPENTIN [Suspect]
     Dosage: 900MG
  9. FENTANYL [Suspect]
     Indication: PAIN
  10. ALFENTANIL [Concomitant]
     Indication: DRUG WITHDRAWAL SYNDROME
     Dosage: 9MG
     Route: 058
  11. ALFENTANIL [Concomitant]
     Dosage: 15MG
     Route: 058
  12. ALFENTANIL [Concomitant]
     Dosage: 50MG
     Route: 058
  13. HYDROMORPHONE HCL [Concomitant]
     Indication: DRUG WITHDRAWAL SYNDROME
     Route: 058

REACTIONS (18)
  - ABDOMINAL PAIN [None]
  - AGGRESSION [None]
  - AGITATION [None]
  - BACK PAIN [None]
  - CONDITION AGGRAVATED [None]
  - DRUG EFFECT DECREASED [None]
  - DRUG WITHDRAWAL SYNDROME [None]
  - FEELING ABNORMAL [None]
  - HYPERHIDROSIS [None]
  - HYPERVENTILATION [None]
  - INFECTION [None]
  - MYALGIA [None]
  - PILOERECTION [None]
  - RENAL IMPAIRMENT [None]
  - RESTLESSNESS [None]
  - SLEEP DISORDER [None]
  - TACHYCARDIA [None]
  - THERAPEUTIC AGENT TOXICITY [None]
